FAERS Safety Report 10625152 (Version 1)
Quarter: 2014Q4

REPORT INFORMATION
  Report Type: Spontaneous
  Country: AT (occurrence: None)
  Receive Date: 20141202
  Receipt Date: 20141202
  Transmission Date: 20150529
  Serious: Yes (Death, Other)
  Sender: FDA-Public Use
  Company Number: AT2014GSK027974

PATIENT
  Age: 39 Year
  Sex: Male
  Weight: 76 kg

DRUGS (4)
  1. TRUVADA (EMTRICITABINE, TENOFOVIR DISOPROXIL FUMARATE, EMTRICITABINE TENOFOVIR DISOPROXIL FUMARATE, EMTRICITABINE, TENOFOVIR DISOPROXIL FUMARATE, EMTRICITABINE, TENOFOVIR DISOPROXIL FUMARATE) [Concomitant]
  2. TRITTICO (TRAZODONE) [Concomitant]
     Active Substance: TRAZODONE HYDROCHLORIDE
  3. CITALOPRAM (CITALOPRAM) [Concomitant]
     Active Substance: CITALOPRAM HYDROBROMIDE
  4. TIVICAY [Suspect]
     Active Substance: DOLUTEGRAVIR SODIUM
     Indication: ACQUIRED IMMUNODEFICIENCY SYNDROME
     Dates: start: 20140709

REACTIONS (1)
  - Completed suicide [None]
